FAERS Safety Report 12924643 (Version 1)
Quarter: 2016Q4

REPORT INFORMATION
  Report Type: Spontaneous
  Country: US (occurrence: US)
  Receive Date: 20161108
  Receipt Date: 20161108
  Transmission Date: 20170207
  Serious: Yes (Hospitalization)
  Sender: FDA-Public Use
  Company Number: None

PATIENT
  Age: 37 Year
  Sex: Female
  Weight: 72 kg

DRUGS (6)
  1. DULOXETINE. [Concomitant]
     Active Substance: DULOXETINE
  2. TRAZODONE [Concomitant]
     Active Substance: TRAZODONE HYDROCHLORIDE
  3. DIAZEPAM. [Concomitant]
     Active Substance: DIAZEPAM
  4. MS CONTIN [Suspect]
     Active Substance: MORPHINE SULFATE
     Indication: PAIN
     Dosage: ?          OTHER FREQUENCY:90MG AM, 120 MG PM;?
     Route: 048
     Dates: start: 20160731, end: 20160807
  5. GABAPENTIN. [Concomitant]
     Active Substance: GABAPENTIN
  6. OXYCODONE [Suspect]
     Active Substance: OXYCODONE
     Indication: PAIN
     Dosage: ?          OTHER FREQUENCY:Q3 H PRN PAIN;?
     Route: 048
     Dates: start: 20160731, end: 20160807

REACTIONS (1)
  - Respiratory depression [None]

NARRATIVE: CASE EVENT DATE: 20160805
